FAERS Safety Report 8629747 (Version 2)
Quarter: 2013Q4

REPORT INFORMATION
  Report Type: Spontaneous
  Country: US (occurrence: US)
  Receive Date: 20120622
  Receipt Date: 20131011
  Transmission Date: 20140711
  Serious: Yes (Disabling)
  Sender: FDA-Public Use
  Company Number: US-ASTRAZENECA-2012SE36245

PATIENT
  Age: 40 Year
  Sex: Female
  Weight: 67.1 kg

DRUGS (13)
  1. NEXIUM [Suspect]
     Indication: GASTRIC ULCER
     Dosage: TWICE A DAILY
     Route: 048
     Dates: start: 1995, end: 1998
  2. NEXIUM [Suspect]
     Indication: GASTROOESOPHAGEAL REFLUX DISEASE
     Dosage: TWICE A DAILY
     Route: 048
     Dates: start: 1995, end: 1998
  3. NEXIUM [Suspect]
     Indication: GASTRIC ULCER
     Dosage: THREE TIMES A DAY
     Route: 048
  4. NEXIUM [Suspect]
     Indication: GASTROOESOPHAGEAL REFLUX DISEASE
     Dosage: THREE TIMES A DAY
     Route: 048
  5. PRILOSEC OTC [Suspect]
     Dosage: ONCE IN A DAY
     Route: 048
  6. PREVACID [Concomitant]
     Dosage: ONE A DAY
     Dates: start: 1998
  7. TAGAMET [Concomitant]
     Dates: start: 1998
  8. PEPCID [Concomitant]
     Dates: start: 1995, end: 1998
  9. MILK OF MAGNSEIA [Concomitant]
     Dosage: ONCE DAILY
     Dates: start: 1995
  10. HYDROCODONE [Concomitant]
     Indication: TOOTHACHE
  11. NAPROXEN [Concomitant]
     Indication: PAIN
  12. HEMOCYTE [Concomitant]
     Indication: IRON DEFICIENCY
  13. METAMUCIL [Concomitant]

REACTIONS (8)
  - Mental disorder [Unknown]
  - Osteoporosis [Unknown]
  - Multiple fractures [Unknown]
  - Foot fracture [Unknown]
  - Road traffic accident [Unknown]
  - Rotator cuff syndrome [Unknown]
  - Gallbladder disorder [Unknown]
  - Ankle fracture [Unknown]
